FAERS Safety Report 4588729-6 (Version None)
Quarter: 2005Q1

REPORT INFORMATION
  Report Type: 
  Country: None (occurrence: None)
  Receive Date: 20050216
  Receipt Date: 20050131
  Transmission Date: 20050727
  Serious: Yes (Hospitalization, Disabling)
  Sender: FDA-Public Use
  Company Number: US_030695149

PATIENT
  Age: 55 Year
  Sex: Female
  Weight: 140 kg

DRUGS (5)
  1. HUMULIN 70/30 [Suspect]
     Indication: DIABETES MELLITUS
     Dates: start: 19970101
  2. HUMALOG [Suspect]
     Indication: DIABETES MELLITUS
     Dates: start: 19990101, end: 20010101
  3. HUMULIN U [Suspect]
  4. DEMADEX [Concomitant]
  5. CELEBREX [Concomitant]

REACTIONS (6)
  - ASTHENIA [None]
  - CELLULITIS [None]
  - GOUT [None]
  - MEMORY IMPAIRMENT [None]
  - UPPER GASTROINTESTINAL HAEMORRHAGE [None]
  - WEIGHT DECREASED [None]
